FAERS Safety Report 12352970 (Version 2)
Quarter: 2016Q2

REPORT INFORMATION
  Report Type: Report from Study
  Country: CA (occurrence: CA)
  Receive Date: 20160510
  Receipt Date: 20160525
  Transmission Date: 20160815
  Serious: Yes (Other)
  Sender: FDA-Public Use
  Company Number: CA-ABBVIE-15P-028-1485296-00

PATIENT
  Age: 28 Year
  Sex: Female

DRUGS (3)
  1. MATERNA [Concomitant]
     Active Substance: MINERALS\VITAMINS
     Indication: VITAMIN SUPPLEMENTATION
     Route: 048
  2. KALETRA [Suspect]
     Active Substance: LOPINAVIR\RITONAVIR
     Indication: HIV INFECTION
     Dosage: 200MG/50 MG, 4 TABS, TOTAL DAILY 800MG/200 MG
     Route: 048
     Dates: start: 20081201
  3. KIVEXA [Concomitant]
     Active Substance: ABACAVIR SULFATE\LAMIVUDINE
     Indication: HIV INFECTION
     Dosage: 600/300 MG
     Route: 048

REACTIONS (7)
  - Placental disorder [Recovering/Resolving]
  - Nausea [Not Recovered/Not Resolved]
  - Cervix disorder [Recovered/Resolved]
  - Back pain [Not Recovered/Not Resolved]
  - Fatigue [Recovering/Resolving]
  - Exposure during pregnancy [Unknown]
  - Anaemia [Unknown]

NARRATIVE: CASE EVENT DATE: 2016
